FAERS Safety Report 6310270-0 (Version None)
Quarter: 2009Q3

REPORT INFORMATION
  Report Type: 
  Country: None (occurrence: None)
  Receive Date: 20090814
  Receipt Date: 20090806
  Transmission Date: 20100115
  Serious: Yes (Disabling)
  Sender: FDA-Public Use
  Company Number: IT-SANOFI-SYNTHELABO-A06200900405

PATIENT
  Sex: Male

DRUGS (3)
  1. FLUOROURACIL [Suspect]
     Indication: COLON CANCER
     Route: 042
     Dates: start: 20071122, end: 20071122
  2. ELOXATIN [Suspect]
     Indication: COLON CANCER
     Route: 042
     Dates: start: 20080516, end: 20080516
  3. XELODA [Suspect]
     Indication: COLON CANCER
     Route: 048
     Dates: start: 20080518, end: 20080518

REACTIONS (1)
  - MYELODYSPLASTIC SYNDROME TRANSFORMATION [None]
